FAERS Safety Report 9319827 (Version 1)
Quarter: 2013Q3

REPORT INFORMATION
  Report Type: Spontaneous
  Country: US (occurrence: None)
  Receive Date: 20130529
  Receipt Date: 20130529
  Transmission Date: 20140515
  Serious: Yes (Hospitalization)
  Sender: FDA-Public Use
  Company Number: None

PATIENT
  Age: 82 Year
  Sex: Male
  Weight: 79.3 kg

DRUGS (2)
  1. LITHIUM [Suspect]
     Indication: ACUTE MYELOID LEUKAEMIA
     Dates: start: 20130520, end: 20130526
  2. TRETINOIN [Suspect]
     Indication: ACUTE MYELOID LEUKAEMIA
     Dosage: 2 TABS BID DAY 1-7+15-21
     Dates: start: 20130520, end: 20130526

REACTIONS (8)
  - Tremor [None]
  - Ataxia [None]
  - Memory impairment [None]
  - Dry mouth [None]
  - Fatigue [None]
  - Constipation [None]
  - Nausea [None]
  - Toxicity to various agents [None]
